FAERS Safety Report 18381484 (Version 1)
Quarter: 2020Q4

REPORT INFORMATION
  Report Type: Spontaneous
  Country: CN (occurrence: CN)
  Receive Date: 20201014
  Receipt Date: 20201014
  Transmission Date: 20210114
  Serious: Yes (Congenital Anomaly, Other)
  Sender: FDA-Public Use
  Company Number: CN-LUPIN PHARMACEUTICALS INC.-2020-07470

PATIENT
  Weight: 2.29 kg

DRUGS (1)
  1. CEFTRIAXONE. [Suspect]
     Active Substance: CEFTRIAXONE
     Indication: LISTERIOSIS
     Dosage: UNK
     Route: 064

REACTIONS (17)
  - Hypoglycaemia [Unknown]
  - Atrial septal defect [Unknown]
  - Patent ductus arteriosus [Unknown]
  - Foetal exposure during pregnancy [Unknown]
  - Dyspnoea [Unknown]
  - Anaemia [Unknown]
  - Neutropenia [Unknown]
  - Foetal distress syndrome [Unknown]
  - Premature baby [Unknown]
  - Metabolic acidosis [Unknown]
  - Sepsis [Unknown]
  - Pneumonia [Unknown]
  - Low birth weight baby [Unknown]
  - Central nervous system infection [Unknown]
  - Liver disorder [Unknown]
  - Meningitis [Unknown]
  - Listeriosis [Unknown]
